FAERS Safety Report 8811221 (Version 3)
Quarter: 2012Q4

REPORT INFORMATION
  Report Type: 
  Country: US (occurrence: US)
  Receive Date: 20120927
  Receipt Date: 20121125
  Transmission Date: 20130627
  Serious: Yes (Hospitalization)
  Sender: FDA-Public Use
  Company Number: US-BAYER-2012-099258

PATIENT
  Age: 23 Year
  Sex: Female
  Weight: 98.41 kg

DRUGS (1)
  1. MIRENA [Suspect]
     Indication: CONTRACEPTION
     Dosage: 20 mcg/24hr, CONT
     Route: 015
     Dates: start: 20110307, end: 20120717

REACTIONS (18)
  - Epilepsy [Recovering/Resolving]
  - Hypersomnia [None]
  - Headache [Not Recovered/Not Resolved]
  - Amnesia [Not Recovered/Not Resolved]
  - Diarrhoea [None]
  - Gastric disorder [None]
  - Nausea [None]
  - Hypoaesthesia [None]
  - Paraesthesia [None]
  - Gait disturbance [None]
  - Fatigue [None]
  - Quality of life decreased [None]
  - Impaired work ability [None]
  - Impaired driving ability [None]
  - Activities of daily living impaired [None]
  - Convulsion [Recovering/Resolving]
  - Tonsillitis [None]
  - Urinary incontinence [None]
